FAERS Safety Report 24953917 (Version 1)
Quarter: 2025Q1

REPORT INFORMATION
  Report Type: Spontaneous
  Country: US (occurrence: US)
  Receive Date: 20250211
  Receipt Date: 20250211
  Transmission Date: 20250409
  Serious: Yes (Other)
  Sender: CATALYST PHARMA
  Company Number: US-CATALYST PHARMACEUTICALS-US-CATA-25-00152

PATIENT
  Age: 18 Year
  Sex: Male
  Weight: 29.932 kg

DRUGS (22)
  1. AGAMREE [Suspect]
     Active Substance: VAMOROLONE
     Indication: Duchenne muscular dystrophy
     Dosage: 3 ML DAILY
     Route: 048
     Dates: start: 20240530, end: 202410
  2. AGAMREE [Suspect]
     Active Substance: VAMOROLONE
     Dosage: 3 ML DAILY
     Dates: start: 202410
  3. HYDROCORTISONE [Concomitant]
     Active Substance: HYDROCORTISONE
     Indication: Adrenocortical insufficiency acute
     Dosage: 20 MG TWICE DAILY
     Route: 048
  4. SOLU-CORTEF [Concomitant]
     Active Substance: HYDROCORTISONE SODIUM SUCCINATE
     Indication: Adrenocortical insufficiency acute
     Route: 065
  5. CETIRIZINE HCL [Concomitant]
     Active Substance: CETIRIZINE HYDROCHLORIDE
     Indication: Hypersensitivity
     Route: 048
  6. VITAMIN D3 [Concomitant]
     Active Substance: CHOLECALCIFEROL
     Indication: Bone disorder
     Dosage: 2 TABLETS DAILY
     Route: 048
  7. NEOMYCIN-POLYMYXIN-HC [Concomitant]
     Indication: Ear infection
     Route: 065
  8. MIRALAX [Concomitant]
     Active Substance: POLYETHYLENE GLYCOL 3350
     Indication: Constipation
     Dosage: ONE PACKET DAILY
     Route: 048
  9. SODIUM FLUORIDE [Concomitant]
     Active Substance: SODIUM FLUORIDE
     Indication: Tooth disorder
     Dosage: 1.1% EVERY NIGHT AT BEDTIME
     Route: 065
  10. VYONDYS 53 [Concomitant]
     Active Substance: GOLODIRSEN
     Indication: Duchenne muscular dystrophy
     Dosage: 1100 MG WEEKLY
     Route: 042
  11. OMEPRAZOLE\SODIUM BICARBONATE [Concomitant]
     Active Substance: OMEPRAZOLE\SODIUM BICARBONATE
     Indication: Gastrooesophageal reflux disease
     Dosage: 1 PACKET DAILY
     Route: 065
  12. CARVEDILOL [Concomitant]
     Active Substance: CARVEDILOL
     Indication: Cardiovascular event prophylaxis
     Dosage: 6.25 MG TWICE DAILY
     Route: 048
  13. LOSARTAN [Concomitant]
     Active Substance: LOSARTAN
     Indication: Cardiovascular event prophylaxis
     Dosage: 12.5 MG TWICE DAILY
     Route: 048
  14. LIDOCAINE\PRILOCAINE [Concomitant]
     Active Substance: LIDOCAINE\PRILOCAINE
     Indication: Infusion related reaction
     Route: 065
  15. ONDANSETRON [Concomitant]
     Active Substance: ONDANSETRON
     Indication: Nausea
     Dosage: 4 MG WEEKLY
     Route: 048
  16. ONDANSETRON [Concomitant]
     Active Substance: ONDANSETRON
     Indication: Vomiting
  17. BOOST KID ESSENTIALS [Concomitant]
     Indication: Nutritional supplementation
     Dosage: 20 FLUID OZ DAILY
     Route: 048
  18. NUTRICIA PREOP [Concomitant]
     Indication: Nutritional supplementation
     Dosage: 6 SCOOPS DAILY
     Route: 048
  19. ALENDRONATE SODIUM [Concomitant]
     Active Substance: ALENDRONATE SODIUM
     Indication: Osteopenia
     Dosage: 37.5 ML ONCE A WEEK
     Route: 048
  20. TRIAMCINOLONE [Concomitant]
     Active Substance: TRIAMCINOLONE
     Indication: Erythema
     Dosage: 0.1% 3 TIMES DAILY
     Route: 061
  21. TRIAMCINOLONE [Concomitant]
     Active Substance: TRIAMCINOLONE
     Indication: Dry skin
  22. TOBREX [Concomitant]
     Active Substance: TOBRAMYCIN
     Indication: Hordeolum
     Route: 047

REACTIONS (3)
  - Gastrostomy [Unknown]
  - Pyrexia [Not Recovered/Not Resolved]
  - Off label use [Unknown]

NARRATIVE: CASE EVENT DATE: 20241001
